FAERS Safety Report 4851174-X (Version None)
Quarter: 2005Q4

REPORT INFORMATION
  Report Type: 
  Country: None (occurrence: None)
  Receive Date: 20051212
  Receipt Date: 20051201
  Transmission Date: 20060501
  Serious: Yes (Hospitalization)
  Sender: FDA-Public Use
  Company Number: US-JNJFOC-20051200787

PATIENT
  Sex: Male
  Weight: 77.11 kg

DRUGS (21)
  1. INFLIXIMAB [Suspect]
     Indication: RHEUMATOID ARTHRITIS
     Route: 042
  2. DILANTIN [Concomitant]
  3. ACETAZOLAMIDE [Concomitant]
  4. PRIMIDONE [Concomitant]
  5. CALCIUM GLUCONATE [Concomitant]
  6. FOLIC ACID [Concomitant]
  7. GLUCOSAMINE/CHONDROITIN [Concomitant]
  8. GLUCOSAMINE/CHONDROITIN [Concomitant]
  9. GLUCOSAMINE/CHONDROITIN [Concomitant]
  10. GLUCOSAMINE/CHONDROITIN [Concomitant]
  11. ASCORBIC ACID [Concomitant]
  12. FERROUS SULFATE TAB [Concomitant]
  13. MULTIVITAMIN [Concomitant]
  14. MULTIVITAMIN [Concomitant]
  15. MULTIVITAMIN [Concomitant]
  16. MULTIVITAMIN [Concomitant]
  17. MULTIVITAMIN [Concomitant]
  18. MULTIVITAMIN [Concomitant]
  19. MULTIVITAMIN [Concomitant]
  20. MULTIVITAMIN [Concomitant]
  21. SAW PALMETTO [Concomitant]

REACTIONS (2)
  - CAROTID ARTERY STENOSIS [None]
  - CEREBROVASCULAR ACCIDENT [None]
